FAERS Safety Report 10739764 (Version 1)
Quarter: 2015Q1

REPORT INFORMATION
  Report Type: Spontaneous
  Country: US (occurrence: US)
  Receive Date: 20150127
  Receipt Date: 20150127
  Transmission Date: 20150721
  Serious: Yes (Life-Threatening, Other)
  Sender: FDA-Public Use
  Company Number: US-JNJFOC-20150111483

PATIENT
  Sex: Female

DRUGS (1)
  1. TYLENOL PM [Suspect]
     Active Substance: ACETAMINOPHEN\DIPHENHYDRAMINE
     Indication: SUICIDE ATTEMPT
     Route: 048
     Dates: start: 20090206, end: 20090206

REACTIONS (3)
  - Coma [Recovered/Resolved]
  - Toxicity to various agents [Unknown]
  - Blindness unilateral [Unknown]

NARRATIVE: CASE EVENT DATE: 200902
